FAERS Safety Report 8781438 (Version 1)
Quarter: 2012Q4

REPORT INFORMATION
  Report Type: Report from Study
  Country: US (occurrence: US)
  Receive Date: 20120913
  Receipt Date: 20120913
  Transmission Date: 20130627
  Serious: No
  Sender: FDA-Public Use
  Company Number: US-VERTEX PHARMACEUTICAL INC.-AE-2012-007957

PATIENT
  Age: 48 Year
  Sex: Male
  Weight: 72.72 kg

DRUGS (6)
  1. INCIVEK [Suspect]
     Indication: HEPATITIS C
     Route: 048
     Dates: start: 20120511
  2. RIBAVIRIN [Concomitant]
     Indication: HEPATITIS C
     Route: 048
     Dates: start: 20120511
  3. PEGASYS PROCLICK [Concomitant]
     Indication: HEPATITIS C
     Route: 058
     Dates: start: 20120511
  4. CENTRUM [Concomitant]
  5. NEXIUM [Concomitant]
  6. SYNTHROID [Concomitant]

REACTIONS (3)
  - Pyrexia [Not Recovered/Not Resolved]
  - Chills [Not Recovered/Not Resolved]
  - Nausea [Not Recovered/Not Resolved]
